FAERS Safety Report 23737865 (Version 1)
Quarter: 2024Q2

REPORT INFORMATION
  Report Type: Spontaneous
  Country: AT (occurrence: AT)
  Receive Date: 20240412
  Receipt Date: 20240412
  Transmission Date: 20240716
  Serious: Yes (Other)
  Sender: FDA-Public Use
  Company Number: AT-Merck Healthcare KGaA-2024018751

PATIENT
  Sex: Male

DRUGS (1)
  1. ERBITUX [Suspect]
     Active Substance: CETUXIMAB
     Indication: Product used for unknown indication
     Dosage: UNK UNK, UNKNOWN
     Route: 065

REACTIONS (1)
  - Hypersensitivity [Unknown]
